FAERS Safety Report 4638442-1 (Version None)
Quarter: 2005Q2

REPORT INFORMATION
  Report Type: 
  Country: None (occurrence: None)
  Receive Date: 20050418
  Receipt Date: 20050404
  Transmission Date: 20051028
  Serious: Yes (Other)
  Sender: FDA-Public Use
  Company Number: 2005054393

PATIENT
  Sex: Male
  Weight: 61.2356 kg

DRUGS (2)
  1. PHENYTOIN [Suspect]
     Indication: EPILEPSY
     Dosage: 300 MG (100 MG, 3 IN 1 D)
     Dates: start: 19740101, end: 20020101
  2. PHENOBARBITAL TAB [Concomitant]

REACTIONS (4)
  - ANTICONVULSANT DRUG LEVEL DECREASED [None]
  - DIZZINESS [None]
  - DRUG EFFECT DECREASED [None]
  - PARTIAL SEIZURES [None]
